FAERS Safety Report 10461081 (Version 4)
Quarter: 2015Q3

REPORT INFORMATION
  Report Type: Spontaneous
  Country: US (occurrence: US)
  Receive Date: 20140918
  Receipt Date: 20150910
  Transmission Date: 20151125
  Serious: Yes (Other)
  Sender: FDA-Public Use
  Company Number: US-UCBSA-2014011736

PATIENT
  Sex: Female

DRUGS (1)
  1. CIMZIA [Suspect]
     Active Substance: CERTOLIZUMAB PEGOL
     Indication: CROHN^S DISEASE
     Dosage: 400 MG, EV 4 WEEKS;  LOT NO: 121147, EXPIRY DATE: JUL-2017
     Route: 058
     Dates: start: 20091001, end: 2015

REACTIONS (4)
  - Eyelid oedema [Recovering/Resolving]
  - Herpes zoster [Recovered/Resolved]
  - Lymphoma [Recovering/Resolving]
  - Urinary tract infection [Recovered/Resolved]

NARRATIVE: CASE EVENT DATE: 2014
